FAERS Safety Report 10164512 (Version 1)
Quarter: 2014Q2

REPORT INFORMATION
  Report Type: Spontaneous
  Country: US (occurrence: US)
  Receive Date: 20140510
  Receipt Date: 20140510
  Transmission Date: 20141212
  Serious: No
  Sender: FDA-Public Use
  Company Number: US-BRISTOL-MYERS SQUIBB COMPANY-20082798

PATIENT
  Age: 63 Year
  Sex: Male
  Weight: 119.27 kg

DRUGS (13)
  1. BYDUREON [Suspect]
     Indication: TYPE 2 DIABETES MELLITUS
     Route: 058
     Dates: start: 2013
  2. DILTIAZEM CD [Concomitant]
  3. LYRICA [Concomitant]
  4. JANUVIA [Concomitant]
  5. METOPROLOL TARTRATE [Concomitant]
  6. LIVALO [Concomitant]
  7. GINKGO [Concomitant]
  8. ECHINACEA [Concomitant]
  9. ECOTRIN [Concomitant]
     Dosage: ECOTRIN ASPRIN
  10. EFIENT [Concomitant]
  11. RAMIPRIL [Concomitant]
  12. TAMSULOSIN [Concomitant]
  13. NASONEX [Concomitant]

REACTIONS (2)
  - Injection site pain [Unknown]
  - Weight decreased [Unknown]
